FAERS Safety Report 9301652 (Version 1)
Quarter: 2012Q4

REPORT INFORMATION
  Report Type: Spontaneous
  Country: TR (occurrence: None)
  Receive Date: 20121109
  Receipt Date: 20121109
  Transmission Date: 20130627
  Serious: Yes (Death)
  Sender: FDA-Public Use
  Company Number: 2011S1000676

PATIENT
  Age: 69 Year
  Sex: Male

DRUGS (4)
  1. CUBICIN (DAPTOMYCIN) [Suspect]
     Indication: MENINGITIS STAPHYLOCOCCAL
  2. CEFTIZOXIME [Concomitant]
  3. VANCOMYCIN [Concomitant]
  4. LINEZOLID [Concomitant]

REACTIONS (1)
  - Death [None]
